FAERS Safety Report 8939891 (Version 3)
Quarter: 2013Q2

REPORT INFORMATION
  Report Type: Spontaneous
  Country: US (occurrence: US)
  Receive Date: 20121201
  Receipt Date: 20130530
  Transmission Date: 20140414
  Serious: Yes (Hospitalization)
  Sender: FDA-Public Use
  Company Number: US-US-EMD SERONO, INC.-7178341

PATIENT
  Age: 57 Year
  Sex: Male

DRUGS (1)
  1. EGRIFTA [Suspect]
     Indication: LIPODYSTROPHY ACQUIRED
     Route: 058
     Dates: start: 20120217, end: 201304

REACTIONS (8)
  - Hypertension [Recovered/Resolved]
  - Heart rate increased [Unknown]
  - Mood swings [Unknown]
  - Hostility [Unknown]
  - Anger [Unknown]
  - Malaise [Recovered/Resolved]
  - Non-cardiac chest pain [Recovered/Resolved]
  - Rash [Unknown]
